FAERS Safety Report 5428382-2 (Version None)
Quarter: 2007Q3

REPORT INFORMATION
  Report Type: 
  Country: None (occurrence: None)
  Receive Date: 20070824
  Receipt Date: 20070820
  Transmission Date: 20080115
  Serious: Yes (Death, Hospitalization)
  Sender: FDA-Public Use
  Company Number: 2007SP015383

PATIENT
  Age: 50 Year
  Sex: Male
  Weight: 119.7496 kg

DRUGS (3)
  1. PEG-INTRON [Suspect]
     Indication: HEPATITIS C
     Dosage: 150 MCG; ; SC
     Route: 058
     Dates: start: 20070612
  2. REBETOL [Suspect]
     Indication: HEPATITIS C
     Dosage: 1400 MG; QD; PO
     Route: 048
  3. PRILOSEC [Concomitant]

REACTIONS (2)
  - PNEUMONIA [None]
  - SEPSIS [None]
